FAERS Safety Report 5143409-3 (Version None)
Quarter: 2006Q4

REPORT INFORMATION
  Report Type: 
  Country: None (occurrence: None)
  Receive Date: 20061101
  Receipt Date: 20061101
  Transmission Date: 20070319
  Serious: Yes (Life-Threatening, Other)
  Sender: FDA-Public Use
  Company Number: None

PATIENT
  Age: 45 Year
  Sex: Male
  Weight: 95.2554 kg

DRUGS (1)
  1. ALPRAZOLAM [Suspect]

REACTIONS (3)
  - DRUG DEPENDENCE [None]
  - ECONOMIC PROBLEM [None]
  - PHARMACEUTICAL PRODUCT COMPLAINT [None]
